FAERS Safety Report 23710786 (Version 5)
Quarter: 2024Q4

REPORT INFORMATION
  Report Type: Spontaneous
  Country: PR (occurrence: PR)
  Receive Date: 20240405
  Receipt Date: 20241024
  Transmission Date: 20250115
  Serious: Yes (Hospitalization, Other)
  Sender: BRISTOL-MYERS SQUIBB COMPANY
  Company Number: PR-BRISTOL-MYERS SQUIBB COMPANY-2024-053618

PATIENT
  Age: 62 Year
  Sex: Female
  Weight: 79.83 kg

DRUGS (19)
  1. REVLIMID [Suspect]
     Active Substance: LENALIDOMIDE
     Indication: Plasma cell myeloma
     Dosage: DAILY FOR 14 DAYS AND 7 DAYS OFF
     Route: 048
     Dates: start: 202310
  2. REVLIMID [Suspect]
     Active Substance: LENALIDOMIDE
     Route: 048
     Dates: start: 202310
  3. REVLIMID [Suspect]
     Active Substance: LENALIDOMIDE
     Route: 048
  4. REVLIMID [Suspect]
     Active Substance: LENALIDOMIDE
     Route: 048
     Dates: start: 2024
  5. REVLIMID [Suspect]
     Active Substance: LENALIDOMIDE
     Dosage: DAILY FOR 14 DAYS EVERY 21 DAYS
     Route: 048
     Dates: start: 20240304, end: 20240910
  6. XGEVA [Concomitant]
     Active Substance: DENOSUMAB
     Indication: Plasma cell myeloma
     Route: 058
  7. BORTEZOMIB [Concomitant]
     Active Substance: BORTEZOMIB
     Indication: Product used for unknown indication
  8. JARDIANCE [Concomitant]
     Active Substance: EMPAGLIFLOZIN
     Indication: Diabetes mellitus
     Route: 048
  9. TAPAZOLE [Concomitant]
     Active Substance: METHIMAZOLE
     Indication: Hyperthyroidism
     Route: 048
  10. DEXAMETHASONE [Concomitant]
     Active Substance: DEXAMETHASONE
     Route: 048
  11. HUMALOG [Concomitant]
     Active Substance: INSULIN LISPRO
     Indication: Diabetes mellitus
     Route: 058
  12. ALBUTEROL SULFATE [Concomitant]
     Active Substance: ALBUTEROL SULFATE
     Dosage: INHALED PO
  13. FLUTICASONE PROPIONATE\SALMETEROL XINAFOATE [Concomitant]
     Active Substance: FLUTICASONE PROPIONATE\SALMETEROL XINAFOATE
     Dosage: INHALED PO
  14. PANTOPRAZOLE [Concomitant]
     Active Substance: PANTOPRAZOLE
     Route: 048
  15. TEMAZEPAM [Concomitant]
     Active Substance: TEMAZEPAM
     Route: 048
  16. SIMVASTATIN [Concomitant]
     Active Substance: SIMVASTATIN
     Route: 048
  17. NEURONTIN [Concomitant]
     Active Substance: GABAPENTIN
     Route: 048
  18. FAMCICLOVIR [Concomitant]
     Active Substance: FAMCICLOVIR
     Route: 048
  19. CLINDAMYCIN HYDROCHLORIDE [Concomitant]
     Active Substance: CLINDAMYCIN HYDROCHLORIDE
     Route: 048

REACTIONS (8)
  - Nervous system disorder [Unknown]
  - Off label use [Unknown]
  - Rash [Not Recovered/Not Resolved]
  - Haemoglobin decreased [Recovering/Resolving]
  - Pulmonary mass [Not Recovered/Not Resolved]
  - Neuropathy peripheral [Recovering/Resolving]
  - Blood calcium decreased [Recovering/Resolving]
  - Tooth abscess [Recovering/Resolving]

NARRATIVE: CASE EVENT DATE: 20240401
